FAERS Safety Report 8000309-9 (Version None)
Quarter: 2011Q4

REPORT INFORMATION
  Report Type: 
  Country: None (occurrence: None)
  Receive Date: 20111216
  Receipt Date: 20111206
  Transmission Date: 20120403
  Serious: Yes (Death)
  Sender: FDA-Public Use
  Company Number: B0769112A

PATIENT
  Age: 71 Year
  Sex: Female

DRUGS (3)
  1. DIGOXIN [Concomitant]
  2. METHIMAZOLE [Concomitant]
  3. PROPRANOLOL HYDROCHLORIDE [Suspect]
     Indication: TACHYCARDIA

REACTIONS (6)
  - SHOCK [None]
  - ATRIAL FIBRILLATION [None]
  - BLOOD PRESSURE DECREASED [None]
  - CARDIAC ARREST [None]
  - OEDEMA PERIPHERAL [None]
  - HAEMOGLOBIN DECREASED [None]
